FAERS Safety Report 5483299-2 (Version None)
Quarter: 2007Q4

REPORT INFORMATION
  Report Type: 
  Country: None (occurrence: None)
  Receive Date: 20071012
  Receipt Date: 20071004
  Transmission Date: 20080405
  Serious: Yes (Other)
  Sender: FDA-Public Use
  Company Number: PHBS2006BR12084

PATIENT
  Age: 49 Year
  Sex: Male
  Weight: 82 kg

DRUGS (6)
  1. FORASEQ [Suspect]
     Indication: ASTHMA
     Dosage: UNK, Q12H
  2. ALDACTONE [Concomitant]
     Indication: CARDIOMEGALY
     Route: 048
  3. AMIODARONE [Suspect]
     Indication: ARRHYTHMIA
     Dosage: 200 MG, QD
     Route: 048
  4. CAPTOPRIL [Concomitant]
     Indication: HYPERTENSION
     Route: 048
  5. ENALAPRIL MALEATE [Concomitant]
     Indication: HYPERTENSION
     Dosage: 12.5 ENAL - 20 MG MALE MG/BID
     Route: 048
  6. DIAZEPAM [Concomitant]
     Indication: CEREBRAL DISORDER
     Route: 048

REACTIONS (7)
  - ARRHYTHMIA [None]
  - BLOOD PRESSURE INCREASED [None]
  - CONFUSIONAL STATE [None]
  - DYSPHONIA [None]
  - FATIGUE [None]
  - HEART RATE INCREASED [None]
  - OEDEMA PERIPHERAL [None]
